FAERS Safety Report 25383054 (Version 2)
Quarter: 2025Q4

REPORT INFORMATION
  Report Type: Report from Study
  Country: US (occurrence: None)
  Receive Date: 20250602
  Receipt Date: 20251107
  Transmission Date: 20260118
  Serious: Yes (Hospitalization)
  Sender: UCB
  Company Number: US-UCBSA-2025032193

PATIENT
  Age: 15 Year
  Weight: 33.9 kg

DRUGS (1)
  1. FENFLURAMINE [Suspect]
     Active Substance: FENFLURAMINE
     Indication: Lennox-Gastaut syndrome
     Dosage: 5.9 MILLILITER, 2X/DAY (BID)

REACTIONS (4)
  - Feeding disorder [Recovered/Resolved]
  - Weight decreased [Recovering/Resolving]
  - Gastrointestinal tube insertion [Recovering/Resolving]
  - Intentional dose omission [Unknown]
